FAERS Safety Report 10792549 (Version 1)
Quarter: 2015Q1

REPORT INFORMATION
  Report Type: Spontaneous
  Country: US (occurrence: None)
  Receive Date: 20150211
  Receipt Date: 20150211
  Transmission Date: 20150721
  Serious: Yes (Hospitalization, Other)
  Sender: FDA-Public Use
  Company Number: 54973 AE # 1596

PATIENT
  Age: 05 Month
  Sex: Male

DRUGS (4)
  1. TOPAMAX [Concomitant]
     Active Substance: TOPIRAMATE
  2. BABY TEETHING [Suspect]
     Active Substance: ARABICA COFFEE BEAN\ATROPA BELLADONNA\CALCIUM PHOSPHATE\CHAMOMILE
     Indication: TEETHING
     Dosage: 2TABSINFORMLAX1MONTH
  3. KEPPRA [Concomitant]
     Active Substance: LEVETIRACETAM
  4. TYLENOL [Concomitant]
     Active Substance: ACETAMINOPHEN

REACTIONS (2)
  - Electroencephalogram abnormal [None]
  - Seizure [None]

NARRATIVE: CASE EVENT DATE: 20150116
